FAERS Safety Report 16154085 (Version 1)
Quarter: 2019Q2

REPORT INFORMATION
  Report Type: Spontaneous
  Country: BE (occurrence: BE)
  Receive Date: 20190403
  Receipt Date: 20190403
  Transmission Date: 20190711
  Serious: Yes (Other)
  Sender: FDA-Public Use
  Company Number: BE-MYLANLABS-2019M1029987

PATIENT
  Sex: Female

DRUGS (7)
  1. CORUNO [Concomitant]
     Active Substance: MOLSIDOMINE
  2. TOTALIP [Concomitant]
     Active Substance: ATORVASTATIN
  3. AMLODIPINE [Suspect]
     Active Substance: AMLODIPINE BESYLATE
     Indication: PRODUCT USED FOR UNKNOWN INDICATION
     Dosage: UNK
  4. ASAFLOW [Concomitant]
     Active Substance: ASPIRIN
     Dosage: 80 MILLIGRAM
  5. CEDOCARD [Concomitant]
     Active Substance: ISOSORBIDE DINITRATE
     Dosage: 5 MILLIGRAM, QD
  6. COZAAR PLUS [Suspect]
     Active Substance: HYDROCHLOROTHIAZIDE\LOSARTAN POTASSIUM
     Indication: PRODUCT USED FOR UNKNOWN INDICATION
     Dosage: UNK
  7. NOBITEN                            /01339101/ [Concomitant]
     Active Substance: NEBIVOLOL
     Dosage: UNK

REACTIONS (3)
  - Dermatitis bullous [Unknown]
  - Rash pruritic [Unknown]
  - Ecchymosis [Unknown]

NARRATIVE: CASE EVENT DATE: 2018
